FAERS Safety Report 21938566 (Version 2)
Quarter: 2023Q1

REPORT INFORMATION
  Report Type: Report from Study
  Country: US (occurrence: US)
  Receive Date: 20230201
  Receipt Date: 20230210
  Transmission Date: 20230417
  Serious: No
  Sender: FDA-Public Use
  Company Number: US-JNJFOC-20230155482

PATIENT
  Age: 12 Year
  Sex: Male
  Weight: 83.990 kg

DRUGS (2)
  1. INFLIXIMAB [Suspect]
     Active Substance: INFLIXIMAB
     Indication: Inflammatory bowel disease
     Route: 041
     Dates: start: 20070308, end: 20181212
  2. HUMIRA [Concomitant]
     Active Substance: ADALIMUMAB
     Dosage: LAST ADMINISTRATION BEFORE THE EVENT ON 18-JAN2023
     Dates: start: 20190129, end: 20230118

REACTIONS (1)
  - Oropharyngeal discomfort [Not Recovered/Not Resolved]

NARRATIVE: CASE EVENT DATE: 20230120
